FAERS Safety Report 8905812 (Version 4)
Quarter: 2013Q2

REPORT INFORMATION
  Report Type: Spontaneous
  Country: JP (occurrence: JP)
  Receive Date: 20121113
  Receipt Date: 20130410
  Transmission Date: 20140414
  Serious: Yes (Other)
  Sender: FDA-Public Use
  Company Number: JP-GLAXOSMITHKLINE-B0843622A

PATIENT
  Age: 46 Year
  Sex: Male

DRUGS (17)
  1. PAXIL [Suspect]
     Indication: ANXIETY
     Dosage: 10MG PER DAY
     Route: 048
     Dates: start: 20110823
  2. PAXIL [Suspect]
     Indication: ANXIETY
     Route: 048
  3. PAXIL [Suspect]
     Indication: ANXIETY
     Dosage: 40MG PER DAY
     Route: 048
     Dates: end: 20111220
  4. RIVOTRIL [Concomitant]
     Route: 048
  5. LOXONIN [Concomitant]
     Route: 065
  6. EURODIN [Concomitant]
     Route: 048
  7. MYSLEE [Concomitant]
     Route: 048
  8. MYONAL [Concomitant]
     Route: 048
  9. TERNELIN [Concomitant]
     Route: 048
  10. GASMOTIN [Concomitant]
     Route: 048
  11. URSO [Concomitant]
     Route: 048
  12. ZYLORIC [Concomitant]
     Route: 048
  13. MUCOSTA [Concomitant]
     Route: 065
  14. NORVASC [Concomitant]
     Route: 048
  15. TAKEPRON [Concomitant]
     Route: 065
  16. PREGABALIN [Concomitant]
     Indication: ANXIETY
     Route: 048
  17. PREGABALIN [Concomitant]
     Indication: ANXIETY
     Route: 048

REACTIONS (2)
  - Drug-induced liver injury [Recovering/Resolving]
  - Hepatic function abnormal [Unknown]
